FAERS Safety Report 9053429 (Version 2)
Quarter: 2013Q1

REPORT INFORMATION
  Report Type: Spontaneous
  Country: GB (occurrence: GB)
  Receive Date: 20130130
  Receipt Date: 20130130
  Transmission Date: 20140127
  Serious: Yes (Hospitalization)
  Sender: FDA-Public Use
  Company Number: GB-AMGEN-GBRSP2012081452

PATIENT
  Age: 62 Year
  Sex: Male

DRUGS (8)
  1. XGEVA [Suspect]
     Indication: PROSTATE CANCER
     Dosage: 120 MG, QMO
     Route: 058
     Dates: start: 20121128
  2. CALCIUM [Concomitant]
  3. VITAMIN D /00107901/ [Concomitant]
  4. PREDNISOLONE [Concomitant]
     Dosage: 5 MG, BID
     Route: 048
  5. AMLODIPINE [Concomitant]
     Dosage: 10 MG, QD
     Route: 048
  6. DOXAZOSIN [Concomitant]
     Dosage: 8 MG, QD
     Route: 048
  7. VALSARTAN [Concomitant]
     Dosage: 160 MG, QD
     Route: 048
  8. ABIRATERONE [Concomitant]
     Dosage: 1 G, QD
     Route: 048

REACTIONS (5)
  - Hypoaesthesia [Recovered/Resolved]
  - Muscle spasms [Recovering/Resolving]
  - Paraesthesia [Recovered/Resolved]
  - Tetany [Recovered/Resolved]
  - Hypocalcaemia [Recovered/Resolved]
